FAERS Safety Report 5233661-8 (Version None)
Quarter: 2007Q1

REPORT INFORMATION
  Report Type: 
  Country: None (occurrence: None)
  Receive Date: 20070208
  Receipt Date: 20070131
  Transmission Date: 20070707
  Serious: Yes (Death, Other)
  Sender: FDA-Public Use
  Company Number: PHBS2007JP01970

PATIENT
  Age: 49 Year
  Sex: Male

DRUGS (14)
  1. ACLARUBICIN [Concomitant]
  2. NEUPOGEN [Concomitant]
  3. CYCLOSPORINE [Suspect]
     Indication: BONE MARROW TRANSPLANT
     Dosage: UNK, UNK
     Route: 065
     Dates: start: 19930101, end: 19930801
  4. CYCLOSPORINE [Suspect]
     Dosage: 100 MG/D
     Route: 065
     Dates: start: 20000101
  5. CYCLOSPORINE [Suspect]
     Dosage: 100 MG/D
     Route: 065
     Dates: start: 20020301
  6. CYCLOSPORINE [Suspect]
     Dosage: 25 MG/D
     Route: 065
     Dates: end: 20041201
  7. BUSULFAN [Concomitant]
     Indication: BONE MARROW TRANSPLANT
  8. CYCLOPHOSPHAMIDE [Concomitant]
     Indication: BONE MARROW TRANSPLANT
  9. METHOTREXATE [Concomitant]
     Indication: BONE MARROW TRANSPLANT
  10. PREDNISOLONE [Concomitant]
     Dosage: 1 MG/KG./D
     Route: 065
  11. PREDNISOLONE [Concomitant]
     Dosage: 1 MG/KG/D
     Route: 065
     Dates: start: 20000101
  12. PREDNISOLONE [Concomitant]
     Dosage: 5 MG/D
  13. PREDNISOLONE [Concomitant]
     Dosage: 1 MG/KG/D
     Route: 065
     Dates: start: 20020301, end: 20041201
  14. ARA-C [Concomitant]

REACTIONS (9)
  - ACUTE MYELOID LEUKAEMIA RECURRENT [None]
  - B-LYMPHOCYTE ABNORMALITIES [None]
  - BONE MARROW MYELOGRAM ABNORMAL [None]
  - CEREBRAL HAEMORRHAGE [None]
  - EPSTEIN-BARR VIRUS INFECTION [None]
  - GRAFT VERSUS HOST DISEASE [None]
  - LYMPHOPROLIFERATIVE DISORDER [None]
  - PANCYTOPENIA [None]
  - PYREXIA [None]
